FAERS Safety Report 16931270 (Version 1)
Quarter: 2019Q4

REPORT INFORMATION
  Report Type: Spontaneous
  Country: IN (occurrence: US)
  Receive Date: 20191017
  Receipt Date: 20191017
  Transmission Date: 20200122
  Serious: Yes (Life-Threatening, Other)
  Sender: FDA-Public Use
  Company Number: US-BAYER-2019-185390

PATIENT
  Sex: Female

DRUGS (1)
  1. ASPIRIN (PAIN AND FEVER) [Suspect]
     Active Substance: ASPIRIN

REACTIONS (1)
  - Anaphylactic reaction [Unknown]
